FAERS Safety Report 24910367 (Version 1)
Quarter: 2025Q1

REPORT INFORMATION
  Report Type: Spontaneous
  Country: DE (occurrence: DE)
  Receive Date: 20250131
  Receipt Date: 20250131
  Transmission Date: 20250409
  Serious: Yes (Other)
  Sender: ALEXION PHARMACEUTICALS
  Company Number: DE-PEI-202400026313

PATIENT
  Age: 7 Month
  Weight: 8.55 kg

DRUGS (1)
  1. NIRSEVIMAB [Suspect]
     Active Substance: NIRSEVIMAB
     Indication: Respiratory syncytial virus immunisation
     Route: 065

REACTIONS (3)
  - Stridor [Recovered/Resolved]
  - Croup infectious [Recovered/Resolved]
  - Gastrointestinal disorder [Recovered/Resolved]
